FAERS Safety Report 6110228-0 (Version None)
Quarter: 2009Q1

REPORT INFORMATION
  Report Type: 
  Country: None (occurrence: None)
  Receive Date: 20090310
  Receipt Date: 20090305
  Transmission Date: 20090719
  Serious: Yes (Other)
  Sender: FDA-Public Use
  Company Number: PHHY2008CH10787

PATIENT
  Sex: Male

DRUGS (1)
  1. RASILEZ [Suspect]
     Indication: HYPERTENSION
     Dosage: UNK
     Dates: start: 20080130, end: 20080315

REACTIONS (6)
  - DIARRHOEA [None]
  - GAIT DISTURBANCE [None]
  - GASTROENTERITIS [None]
  - INFLUENZA LIKE ILLNESS [None]
  - MYALGIA [None]
  - PARAESTHESIA [None]
